FAERS Safety Report 9822742 (Version 1)
Quarter: 2014Q1

REPORT INFORMATION
  Report Type: Not Available
  Country: GB (occurrence: GB)
  Receive Date: 20140116
  Receipt Date: 20140116
  Transmission Date: 20141002
  Serious: Yes (Other)
  Sender: FDA-Public Use
  Company Number: GB-BEH-2014040041

PATIENT
  Age: 42 Year
  Sex: Female

DRUGS (1)
  1. BERINERT [Suspect]

REACTIONS (2)
  - Suspected transmission of an infectious agent via product [Unknown]
  - Hepatitis acute [Unknown]
